FAERS Safety Report 19129791 (Version 1)
Quarter: 2021Q2

REPORT INFORMATION
  Report Type: Spontaneous
  Country: US (occurrence: US)
  Receive Date: 20210413
  Receipt Date: 20210413
  Transmission Date: 20210717
  Serious: No
  Sender: FDA-Public Use
  Company Number: US-TOPROL-2020000404

PATIENT
  Age: 88 Year
  Sex: Female

DRUGS (1)
  1. TOPROL XL [Suspect]
     Active Substance: METOPROLOL SUCCINATE
     Dosage: 12.5 MG, QD

REACTIONS (4)
  - Off label use [Unknown]
  - Blood pressure fluctuation [Unknown]
  - COVID-19 [Unknown]
  - Product complaint [Unknown]
